FAERS Safety Report 24438856 (Version 1)
Quarter: 2024Q4

REPORT INFORMATION
  Report Type: Spontaneous
  Country: CY (occurrence: CY)
  Receive Date: 20241015
  Receipt Date: 20241015
  Transmission Date: 20250115
  Serious: Yes (Other)
  Sender: GALDERMA
  Company Number: CY-GALDERMA-CY2024014929

PATIENT

DRUGS (1)
  1. TRIFAROTENE [Suspect]
     Active Substance: TRIFAROTENE
     Indication: Acne
     Dosage: 1 DOSAGE FORM, QD, APPLIED ON FACE
     Route: 061

REACTIONS (1)
  - Application site burn [Unknown]
